FAERS Safety Report 7258310-9 (Version None)
Quarter: 2011Q1

REPORT INFORMATION
  Report Type: 
  Country: None (occurrence: None)
  Receive Date: 20110129
  Receipt Date: 20100820
  Transmission Date: 20110831
  Serious: No
  Sender: FDA-Public Use
  Company Number: US-ABBOTT-10P-163-0660427-00

PATIENT
  Sex: Female

DRUGS (5)
  1. OMEPRAZOLE [Concomitant]
     Indication: DYSPEPSIA
  2. OXYBUTYNIN [Concomitant]
     Indication: HYPERTONIC BLADDER
  3. JOLESSA [Concomitant]
     Indication: CONTRACEPTION
  4. ALBUTEROL [Concomitant]
     Indication: ASTHMA
  5. HUMIRA [Suspect]
     Indication: CROHN'S DISEASE
     Dates: start: 20100501

REACTIONS (3)
  - WRONG TECHNIQUE IN DRUG USAGE PROCESS [None]
  - INCORRECT DOSE ADMINISTERED [None]
  - INJECTION SITE HAEMORRHAGE [None]
